FAERS Safety Report 9458477 (Version 3)
Quarter: 2013Q3

REPORT INFORMATION
  Report Type: Report from Study
  Country: CA (occurrence: CA)
  Receive Date: 20130814
  Receipt Date: 20130822
  Transmission Date: 20140515
  Serious: Yes (Hospitalization, Other)
  Sender: FDA-Public Use
  Company Number: CA-ROCHE-1185145

PATIENT
  Age: 70 Year
  Sex: Male

DRUGS (14)
  1. PEGASYS [Suspect]
     Indication: HEPATITIS C
     Route: 058
     Dates: start: 20121113
  2. PEGASYS [Suspect]
     Route: 058
     Dates: start: 20130214
  3. PEGASYS [Suspect]
     Route: 058
     Dates: start: 20130215
  4. PEGASYS [Suspect]
     Route: 058
     Dates: start: 20121115, end: 20130626
  5. COPEGUS [Suspect]
     Indication: HEPATITIS C
     Route: 048
     Dates: start: 20121113
  6. COPEGUS [Suspect]
     Route: 048
     Dates: start: 20130122
  7. COPEGUS [Suspect]
     Route: 048
     Dates: start: 20130214
  8. COPEGUS [Suspect]
     Route: 048
     Dates: start: 20121115
  9. COPEGUS [Suspect]
     Route: 048
     Dates: start: 20121115, end: 20130626
  10. INCIVEK [Suspect]
     Indication: HEPATITIS C
     Route: 048
     Dates: start: 20121213
  11. INCIVEK [Suspect]
     Route: 048
     Dates: start: 20121213, end: 20130307
  12. MEDAZEPAM [Concomitant]
  13. TEMAZEPAM [Concomitant]
  14. FUROSEMIDE [Concomitant]
     Route: 065

REACTIONS (10)
  - Pruritus [Recovering/Resolving]
  - Rash [Recovering/Resolving]
  - Haemoglobin decreased [Not Recovered/Not Resolved]
  - Pneumonia [Unknown]
  - Balance disorder [Not Recovered/Not Resolved]
  - Fall [Unknown]
  - Oedema [Recovering/Resolving]
  - Local swelling [Not Recovered/Not Resolved]
  - Fatigue [Not Recovered/Not Resolved]
  - Anaemia [Unknown]
